FAERS Safety Report 6400905-6 (Version None)
Quarter: 2009Q4

REPORT INFORMATION
  Report Type: 
  Country: None (occurrence: None)
  Receive Date: 20091009
  Receipt Date: 20091005
  Transmission Date: 20100525
  Serious: Yes (Other)
  Sender: FDA-Public Use
  Company Number: OPIR20090061

PATIENT
  Sex: Male

DRUGS (4)
  1. OPANA [Suspect]
     Indication: DRUG USE FOR UNKNOWN INDICATION
  2. OXYCONTIN [Suspect]
     Indication: DRUG USE FOR UNKNOWN INDICATION
  3. DILAUDID [Suspect]
     Indication: DRUG USE FOR UNKNOWN INDICATION
  4. LORTAB (PROMETHAZINE HYDROCHLORIDE, PARACETAMOL, HYDROCODONE BITARTRAT [Concomitant]
     Indication: DRUG USE FOR UNKNOWN INDICATION

REACTIONS (1)
  - SELF-MEDICATION [None]
